FAERS Safety Report 7844437-7 (Version None)
Quarter: 2011Q4

REPORT INFORMATION
  Report Type: 
  Country: None (occurrence: None)
  Receive Date: 20111025
  Receipt Date: 20111019
  Transmission Date: 20120403
  Serious: Yes (Death, Hospitalization)
  Sender: FDA-Public Use
  Company Number: US-CELGENEUS-163-21880-11071912

PATIENT
  Sex: Male
  Weight: 49.032 kg

DRUGS (12)
  1. REVLIMID [Suspect]
     Indication: MULTIPLE MYELOMA
     Dosage: 25 MILLIGRAM
     Route: 048
     Dates: start: 20110511
  2. ULTRAM [Concomitant]
     Indication: PAIN
     Route: 065
  3. CASODEX [Concomitant]
     Dosage: 50 MILLIGRAM
     Route: 065
  4. STARLIX [Concomitant]
     Dosage: 120 MILLIGRAM
     Route: 065
  5. AXID [Concomitant]
     Dosage: 158 MILLIGRAM
     Route: 065
  6. TOPROL-XL [Concomitant]
     Dosage: 100 MILLIGRAM
     Route: 065
  7. ASPIRIN [Concomitant]
     Dosage: 81 MILLIGRAM
     Route: 065
  8. AMITIZA [Concomitant]
     Dosage: 24 MICROGRAM
     Route: 065
  9. FORTEO [Concomitant]
     Route: 065
  10. NORVASC [Concomitant]
     Dosage: 27.5 MILLIGRAM
     Route: 065
  11. DIOVAN [Concomitant]
     Dosage: 160 MILLIGRAM
     Route: 065
  12. ALDACTONE [Concomitant]
     Dosage: 12.5 MILLIGRAM
     Route: 065

REACTIONS (1)
  - STAPHYLOCOCCAL SEPSIS [None]
